FAERS Safety Report 4938887-6 (Version None)
Quarter: 2006Q1

REPORT INFORMATION
  Report Type: 
  Country: None (occurrence: None)
  Receive Date: 20060309
  Receipt Date: 20050930
  Transmission Date: 20060701
  Serious: Yes (Hospitalization)
  Sender: FDA-Public Use
  Company Number: US-MERCK-0510USA01381

PATIENT
  Age: 66 Year
  Sex: Female
  Weight: 109 kg

DRUGS (1)
  1. VIOXX [Suspect]
     Indication: ARTHRITIS
     Route: 048
     Dates: start: 19990501, end: 20040930

REACTIONS (7)
  - ANGINA PECTORIS [None]
  - CORONARY ARTERY DISEASE [None]
  - HAEMATOMA [None]
  - PALPITATIONS [None]
  - ROAD TRAFFIC ACCIDENT [None]
  - TOE DEFORMITY [None]
  - UPPER LIMB FRACTURE [None]
